FAERS Safety Report 22845067 (Version 4)
Quarter: 2024Q1

REPORT INFORMATION
  Report Type: Spontaneous
  Country: US (occurrence: US)
  Receive Date: 20230821
  Receipt Date: 20240104
  Transmission Date: 20240409
  Serious: No
  Sender: FDA-Public Use
  Company Number: US-BIOGEN-2023BI01218544

PATIENT
  Sex: Female

DRUGS (1)
  1. VUMERITY [Suspect]
     Active Substance: DIROXIMEL FUMARATE
     Indication: Multiple sclerosis
     Route: 050
     Dates: start: 20220614, end: 20231115

REACTIONS (4)
  - White blood cell count decreased [Not Recovered/Not Resolved]
  - Back pain [Unknown]
  - Pain [Recovered/Resolved]
  - Abdominal pain [Unknown]
